FAERS Safety Report 5308623-2 (Version None)
Quarter: 2007Q2

REPORT INFORMATION
  Report Type: 
  Country: None (occurrence: None)
  Receive Date: 20070426
  Receipt Date: 20070420
  Transmission Date: 20071010
  Serious: Yes (Hospitalization)
  Sender: FDA-Public Use
  Company Number: FRWYE508020APR07

PATIENT
  Age: 35 Year
  Sex: Female
  Weight: 65 kg

DRUGS (12)
  1. ADVIL [Suspect]
     Dosage: UNKNOWN
     Route: 048
     Dates: start: 20061014, end: 20061016
  2. FARMORUBICIN [Suspect]
     Dosage: 130 MG/CYCLE
     Dates: start: 20060915, end: 20060915
  3. FARMORUBICIN [Suspect]
     Dosage: 130 MG/CYCLE
     Dates: start: 20061005, end: 20061006
  4. NEULASTA [Concomitant]
  5. ZOPHREN [Suspect]
     Dosage: 1 DOSE/CYCLE
     Dates: start: 20060915, end: 20060915
  6. ZOPHREN [Suspect]
     Dosage: 1 DOSE/CYCLE
     Dates: start: 20061005, end: 20061006
  7. METOCLOPRAMIDE [Suspect]
     Route: 048
     Dates: start: 20060915, end: 20060915
  8. METOCLOPRAMIDE [Suspect]
     Route: 048
     Dates: start: 20061005, end: 20061006
  9. TAXOTERE [Suspect]
     Dosage: 130MG/CYCLE
     Dates: start: 20060915, end: 20060915
  10. TAXOTERE [Suspect]
     Dosage: 130MG/CYCLE
     Dates: start: 20061005, end: 20061006
  11. SOLUPRED [Suspect]
     Dosage: UNKNOWN
     Route: 048
     Dates: start: 20060915, end: 20060915
  12. SOLUPRED [Suspect]
     Dosage: UNKNOWN
     Route: 048
     Dates: start: 20061005, end: 20061006

REACTIONS (3)
  - CYTOLYTIC HEPATITIS [None]
  - HEPATITIS CHOLESTATIC [None]
  - NASOPHARYNGITIS [None]
